FAERS Safety Report 6013263-6 (Version None)
Quarter: 2008Q4

REPORT INFORMATION
  Report Type: 
  Country: None (occurrence: None)
  Receive Date: 20081218
  Receipt Date: 20081218
  Transmission Date: 20090506
  Serious: Yes (Hospitalization, Disabling)
  Sender: FDA-Public Use
  Company Number: None

PATIENT
  Sex: Female
  Weight: 68.0396 kg

DRUGS (1)
  1. MIRENA [Suspect]
     Indication: CONTRACEPTION
     Dosage: DAILY INTRA-UTERINE
     Route: 015
     Dates: start: 20080703, end: 20081013

REACTIONS (5)
  - DISCOMFORT [None]
  - HYPERHIDROSIS [None]
  - OVARIAN CYST [None]
  - PAIN [None]
  - PYREXIA [None]
